FAERS Safety Report 6244725-4 (Version None)
Quarter: 2009Q2

REPORT INFORMATION
  Report Type: 
  Country: None (occurrence: None)
  Receive Date: 20090619
  Receipt Date: 20080424
  Transmission Date: 20091009
  Serious: No
  Sender: FDA-Public Use
  Company Number: ALL1-2009-01114

PATIENT
  Age: 13 Year
  Sex: Male

DRUGS (1)
  1. VYVANSE [Suspect]
     Dosage: 50 MG, 1X/DAY:QD (WEEKDAYS ONLY), ORAL
     Route: 048
     Dates: start: 20080101

REACTIONS (5)
  - DRUG SCREEN NEGATIVE [None]
  - INSOMNIA [None]
  - NEGATIVISM [None]
  - OFF LABEL USE [None]
  - SEXUAL ABUSE [None]
